FAERS Safety Report 25240008 (Version 1)
Quarter: 2025Q2

REPORT INFORMATION
  Report Type: Report from Study
  Country: US (occurrence: US)
  Receive Date: 20250425
  Receipt Date: 20250425
  Transmission Date: 20250716
  Serious: Yes (Other)
  Sender: ABBVIE
  Company Number: US-ABBVIE-6241190

PATIENT
  Sex: Female

DRUGS (1)
  1. HUMIRA [Suspect]
     Active Substance: ADALIMUMAB
     Indication: Product used for unknown indication
     Route: 058
     Dates: start: 20240101, end: 202412

REACTIONS (9)
  - Systemic lupus erythematosus [Unknown]
  - Symptom recurrence [Unknown]
  - Peripheral swelling [Unknown]
  - Autoimmune disorder [Unknown]
  - Hypersomnia [Unknown]
  - Pain in extremity [Unknown]
  - Sjogren^s syndrome [Unknown]
  - Coeliac disease [Unknown]
  - Connective tissue disorder [Unknown]
